FAERS Safety Report 14339979 (Version 2)
Quarter: 2018Q1

REPORT INFORMATION
  Report Type: Report from Study
  Country: JP (occurrence: JP)
  Receive Date: 20171231
  Receipt Date: 20180107
  Transmission Date: 20180509
  Serious: Yes (Other)
  Sender: FDA-Public Use
  Company Number: JP-TEVA-2017-JP-838284

PATIENT

DRUGS (2)
  1. 5-FLUOROURACIL [Suspect]
     Active Substance: FLUOROURACIL
     Indication: SQUAMOUS CELL CARCINOMA OF THE ORAL CAVITY
     Dosage: 800MG/M2 FROM DAY ONE TO DAY FIVE, EVERY THREE WEEKS
     Route: 065
  2. CISPLATIN. [Suspect]
     Active Substance: CISPLATIN
     Indication: SQUAMOUS CELL CARCINOMA OF THE ORAL CAVITY
     Dosage: 80MG/M2 ON DAY SIX
     Route: 065

REACTIONS (1)
  - Febrile neutropenia [Unknown]
